FAERS Safety Report 18526075 (Version 1)
Quarter: 2020Q4

REPORT INFORMATION
  Report Type: Other
  Country: US (occurrence: US)
  Receive Date: 20201120
  Receipt Date: 20201120
  Transmission Date: 20210114
  Serious: Yes (Death)
  Sender: FDA-Public Use
  Company Number: US-ROCHE-2713914

PATIENT
  Age: 64 Year
  Sex: Female

DRUGS (10)
  1. OCREVUS [Suspect]
     Active Substance: OCRELIZUMAB
     Indication: PRIMARY PROGRESSIVE MULTIPLE SCLEROSIS
     Dosage: (PRESCRIBED AS 300 MG ON DAY 1 AND  DAY 15 AND 600 MG ONCE IN 6 MONTHS)
     Route: 065
     Dates: start: 20180329
  2. OCREVUS [Suspect]
     Active Substance: OCRELIZUMAB
     Indication: MULTIPLE SCLEROSIS
  3. ELIQUIS [Concomitant]
     Active Substance: APIXABAN
  4. NORCO [Concomitant]
     Active Substance: ACETAMINOPHEN\HYDROCODONE BITARTRATE
  5. METFORMIN [Concomitant]
     Active Substance: METFORMIN HYDROCHLORIDE
  6. METOPROLOL. [Concomitant]
     Active Substance: METOPROLOL
  7. ATORVASTATIN [Concomitant]
     Active Substance: ATORVASTATIN
  8. TRAZODONE [Concomitant]
     Active Substance: TRAZODONE HYDROCHLORIDE
  9. ZOLOFT [Concomitant]
     Active Substance: SERTRALINE HYDROCHLORIDE
  10. PROTONIX [Concomitant]
     Active Substance: PANTOPRAZOLE SODIUM

REACTIONS (1)
  - Death [Fatal]

NARRATIVE: CASE EVENT DATE: 20201023
